FAERS Safety Report 7783814-X (Version None)
Quarter: 2011Q3

REPORT INFORMATION
  Report Type: 
  Country: None (occurrence: None)
  Receive Date: 20110928
  Receipt Date: 20110914
  Transmission Date: 20111222
  Serious: Yes (Other)
  Sender: FDA-Public Use
  Company Number: US-JNJFOC-20110906587

PATIENT
  Age: 65 Year
  Sex: Female
  Weight: 65.77 kg

DRUGS (2)
  1. ROGAINE (FOR WOMEN) [Suspect]
     Indication: ALOPECIA
     Route: 061
  2. ROGAINE (FOR WOMEN) [Suspect]
     Route: 061

REACTIONS (4)
  - PRODUCT QUALITY ISSUE [None]
  - THERMAL BURN [None]
  - SCAB [None]
  - ACCIDENTAL EXPOSURE [None]
